FAERS Safety Report 6061736-2 (Version None)
Quarter: 2009Q1

REPORT INFORMATION
  Report Type: 
  Country: None (occurrence: None)
  Receive Date: 20090202
  Receipt Date: 20090128
  Transmission Date: 20090719
  Serious: Yes (Death)
  Sender: FDA-Public Use
  Company Number: IT-TEVA-183932ISR

PATIENT
  Sex: Female

DRUGS (2)
  1. CARBOPLATIN [Suspect]
     Indication: NON-SMALL CELL LUNG CANCER
     Route: 042
     Dates: start: 20081113, end: 20081224
  2. PEMETREXED [Concomitant]
     Indication: NON-SMALL CELL LUNG CANCER
     Route: 042
     Dates: start: 20081113, end: 20081224

REACTIONS (5)
  - COMA [None]
  - HAEMATURIA [None]
  - HYPOTENSION [None]
  - NEUTROPENIA [None]
  - THROMBOCYTOPENIA [None]
